FAERS Safety Report 9774829 (Version 1)
Quarter: 2013Q4

REPORT INFORMATION
  Report Type: Spontaneous
  Country: US (occurrence: US)
  Receive Date: 20131220
  Receipt Date: 20131220
  Transmission Date: 20140711
  Serious: No
  Sender: FDA-Public Use
  Company Number: US-PFIZER INC-2013363048

PATIENT
  Age: 33 Year
  Sex: Female

DRUGS (3)
  1. DOXORUBICIN HCL [Suspect]
     Dosage: UNK
  2. DOXORUBICIN HCL [Suspect]
     Dosage: UNK
  3. DOXORUBICIN HCL [Suspect]
     Dosage: UNK

REACTIONS (2)
  - Therapeutic response decreased [Unknown]
  - Product measured potency issue [Unknown]
